FAERS Safety Report 7880011 (Version 3)
Quarter: 2014Q4

REPORT INFORMATION
  Report Type: Report from Study
  Country: CA (occurrence: CA)
  Receive Date: 20110331
  Receipt Date: 20141223
  Transmission Date: 20150529
  Serious: Yes (Other)
  Sender: FDA-Public Use
  Company Number: CA-JNJFOC-20110308249

PATIENT
  Age: 50 Year
  Sex: Female
  Weight: 74.39 kg

DRUGS (6)
  1. PREVACID [Concomitant]
     Active Substance: LANSOPRAZOLE
     Route: 065
  2. STELARA [Suspect]
     Active Substance: USTEKINUMAB
     Indication: PSORIASIS
     Route: 058
     Dates: start: 20110307
  3. ATACAND [Concomitant]
     Active Substance: CANDESARTAN CILEXETIL
     Route: 065
     Dates: start: 201011
  4. WELLBUTRIN [Concomitant]
     Active Substance: BUPROPION HYDROCHLORIDE
     Dates: start: 201007
  5. ALDACTONE [Concomitant]
     Active Substance: SPIRONOLACTONE
     Indication: RASH PUSTULAR
     Route: 065
     Dates: start: 201007
  6. ACCUTANE [Concomitant]
     Active Substance: ISOTRETINOIN
     Indication: RASH PUSTULAR
     Route: 065
     Dates: start: 201007

REACTIONS (6)
  - Rash pustular [Not Recovered/Not Resolved]
  - Eczema [Recovered/Resolved]
  - Condition aggravated [Unknown]
  - Dry skin [Not Recovered/Not Resolved]
  - Psoriasis [Unknown]
  - Skin exfoliation [Unknown]

NARRATIVE: CASE EVENT DATE: 20110318
